FAERS Safety Report 9223349 (Version 2)
Quarter: 2013Q2

REPORT INFORMATION
  Report Type: Spontaneous
  Country: FI (occurrence: FI)
  Receive Date: 20130410
  Receipt Date: 20130426
  Transmission Date: 20140414
  Serious: Yes (Hospitalization, Other)
  Sender: FDA-Public Use
  Company Number: FI-ABBOTT-13P-055-1071027-00

PATIENT
  Age: 66 Year
  Sex: Female

DRUGS (19)
  1. HUMIRA [Suspect]
     Indication: RHEUMATOID ARTHRITIS
     Route: 058
     Dates: start: 20080403, end: 20121031
  2. REUMACON [Concomitant]
     Indication: PRODUCT USED FOR UNKNOWN INDICATION
     Dosage: 2X3
     Dates: start: 20110916
  3. PREDNISOLON [Concomitant]
     Indication: PRODUCT USED FOR UNKNOWN INDICATION
     Dates: end: 201203
  4. PREDNISOLON [Concomitant]
     Dosage: 1-2X1
     Dates: start: 20130211
  5. GASTERIX [Concomitant]
     Indication: PRODUCT USED FOR UNKNOWN INDICATION
     Dates: start: 20121025
  6. METOHEXAL [Concomitant]
     Indication: PRODUCT USED FOR UNKNOWN INDICATION
     Dates: start: 20110615
  7. LOSATRIX COMP [Concomitant]
     Indication: PRODUCT USED FOR UNKNOWN INDICATION
     Dosage: 100MG/12.5MG
     Dates: start: 20121031, end: 20130325
  8. PANADOL [Concomitant]
     Indication: PRODUCT USED FOR UNKNOWN INDICATION
     Dosage: ?-1X3, NOT MORE THAN 1 TAB 3X PER DAY
     Dates: start: 20120405
  9. VENTOLINE [Concomitant]
     Indication: PRODUCT USED FOR UNKNOWN INDICATION
     Dosage: 1X1-4, PAUSED DURING SERETIDE
     Dates: start: 20120704
  10. KALCIPOS-D [Concomitant]
     Indication: PRODUCT USED FOR UNKNOWN INDICATION
     Dosage: 500MG/400IU
     Dates: start: 20130109
  11. KALEORID [Concomitant]
     Indication: PRODUCT USED FOR UNKNOWN INDICATION
  12. KALEORID [Concomitant]
     Dosage: 1 G 1X3
     Dates: start: 20121123
  13. LOSARTAN ORION [Concomitant]
     Dates: start: 20130325
  14. AVASTIN [Concomitant]
     Indication: PRODUCT USED FOR UNKNOWN INDICATION
     Dosage: INFUSION CONCENTRATE
     Dates: start: 20130325
  15. ALVESCO [Concomitant]
     Indication: PRODUCT USED FOR UNKNOWN INDICATION
     Dosage: 1-2 SPRAYS X 1
     Dates: start: 20121121
  16. OXIKLORIN [Concomitant]
     Indication: PRODUCT USED FOR UNKNOWN INDICATION
     Dates: end: 201203
  17. FLIXOTIDE DISKUS [Concomitant]
     Indication: PRODUCT USED FOR UNKNOWN INDICATION
     Dates: end: 20121121
  18. LOSATRIX [Concomitant]
     Indication: PRODUCT USED FOR UNKNOWN INDICATION
     Dates: end: 20121031
  19. EYE MEDICATION [Concomitant]
     Indication: PRODUCT USED FOR UNKNOWN INDICATION

REACTIONS (16)
  - Productive cough [Recovered/Resolved]
  - Lung consolidation [Recovered/Resolved]
  - Joint swelling [Unknown]
  - Arthralgia [Unknown]
  - Synovitis [Unknown]
  - Arthralgia [Unknown]
  - Joint swelling [Unknown]
  - Hypertension [Unknown]
  - Tracheal haemorrhage [Unknown]
  - Lung infiltration [Recovering/Resolving]
  - Osteoporosis [Unknown]
  - Asthma [Unknown]
  - Thrombocytopenic purpura [Unknown]
  - Retinal detachment [Unknown]
  - Bronchial haemorrhage [Unknown]
  - Liver disorder [Unknown]
